FAERS Safety Report 4498974-6 (Version None)
Quarter: 2004Q4

REPORT INFORMATION
  Report Type: 
  Country: None (occurrence: None)
  Receive Date: 20041104
  Receipt Date: 20041104
  Transmission Date: 20050328
  Serious: No
  Sender: FDA-Public Use
  Company Number: None

PATIENT
  Age: 39 Year
  Sex: Male

DRUGS (1)
  1. NAPROSYN [Suspect]
     Indication: BACK PAIN
     Dosage: 500 MG PO BID
     Route: 048

REACTIONS (2)
  - DRUG EFFECT DECREASED [None]
  - TINNITUS [None]
